FAERS Safety Report 11769670 (Version 3)
Quarter: 2015Q4

REPORT INFORMATION
  Report Type: Spontaneous
  Country: JP (occurrence: JP)
  Receive Date: 20151123
  Receipt Date: 20151208
  Transmission Date: 20160304
  Serious: Yes (Hospitalization)
  Sender: FDA-Public Use
  Company Number: JP-SA-2015SA184623

PATIENT
  Age: 20 Year
  Sex: Male

DRUGS (2)
  1. INSULIN LISPRO [Suspect]
     Active Substance: INSULIN LISPRO
     Indication: TYPE 1 DIABETES MELLITUS
     Route: 065
  2. INSULIN GLARGINE [Suspect]
     Active Substance: INSULIN GLARGINE
     Indication: TYPE 1 DIABETES MELLITUS
     Route: 065

REACTIONS (3)
  - Rash [Recovering/Resolving]
  - Dermatitis bullous [Recovering/Resolving]
  - Pruritus [Recovering/Resolving]
